FAERS Safety Report 20092981 (Version 3)
Quarter: 2022Q1

REPORT INFORMATION
  Report Type: Report from Study
  Country: DE (occurrence: DE)
  Receive Date: 20211120
  Receipt Date: 20220209
  Transmission Date: 20220423
  Serious: Yes (Hospitalization)
  Sender: FDA-Public Use
  Company Number: DE-NOVARTISPH-NVSC2021DE260525

PATIENT
  Sex: Male
  Weight: 70 kg

DRUGS (26)
  1. COSENTYX [Suspect]
     Active Substance: SECUKINUMAB
     Indication: Ankylosing spondylitis
     Dosage: 150 MG, QW (ONCE)
     Route: 065
     Dates: start: 20191213, end: 20191213
  2. COSENTYX [Suspect]
     Active Substance: SECUKINUMAB
     Dosage: 150 MG, QW (ONCE)
     Route: 065
     Dates: start: 20191220, end: 20191220
  3. COSENTYX [Suspect]
     Active Substance: SECUKINUMAB
     Dosage: 150 MG, QW (ONCE)
     Route: 065
     Dates: start: 20191227, end: 20191227
  4. COSENTYX [Suspect]
     Active Substance: SECUKINUMAB
     Dosage: 150 MG, QW (ONCE)
     Route: 065
     Dates: start: 20200103, end: 20200103
  5. COSENTYX [Suspect]
     Active Substance: SECUKINUMAB
     Dosage: 150 MG, QW (ONCE)
     Route: 065
     Dates: start: 20200110, end: 20200110
  6. COSENTYX [Suspect]
     Active Substance: SECUKINUMAB
     Dosage: 150 MG, QMO (ONCE)
     Route: 065
     Dates: start: 20200206, end: 20200206
  7. COSENTYX [Suspect]
     Active Substance: SECUKINUMAB
     Dosage: 150 MG, QMO (ONCE)
     Route: 065
     Dates: start: 20200305, end: 20200305
  8. COSENTYX [Suspect]
     Active Substance: SECUKINUMAB
     Dosage: 150 MG, QMO (ONCE)
     Route: 065
     Dates: start: 20200402, end: 20200402
  9. COSENTYX [Suspect]
     Active Substance: SECUKINUMAB
     Dosage: 150 MG, QMO (ONCE)
     Route: 065
     Dates: start: 20200430, end: 20200430
  10. COSENTYX [Suspect]
     Active Substance: SECUKINUMAB
     Dosage: 150 MG, QMO (ONCE)
     Route: 065
     Dates: start: 20200528, end: 20200528
  11. COSENTYX [Suspect]
     Active Substance: SECUKINUMAB
     Dosage: 150 MG, QMO (ONCE)
     Route: 065
     Dates: start: 20200625, end: 20200625
  12. COSENTYX [Suspect]
     Active Substance: SECUKINUMAB
     Dosage: 150 MG, QMO (ONCE)
     Route: 065
     Dates: start: 20200723, end: 20200723
  13. COSENTYX [Suspect]
     Active Substance: SECUKINUMAB
     Dosage: 150 MG, QMO (ONCE)
     Route: 065
     Dates: start: 20200820, end: 20200820
  14. COSENTYX [Suspect]
     Active Substance: SECUKINUMAB
     Dosage: 150 MG, QMO (ONCE)
     Route: 065
     Dates: start: 20200917, end: 20200917
  15. COSENTYX [Suspect]
     Active Substance: SECUKINUMAB
     Dosage: 150 MG, QMO (ONCE)
     Route: 065
     Dates: start: 20201015, end: 20201015
  16. COSENTYX [Suspect]
     Active Substance: SECUKINUMAB
     Dosage: 150 MG, QMO (ONCE)
     Route: 065
     Dates: start: 20201112, end: 20201112
  17. COSENTYX [Suspect]
     Active Substance: SECUKINUMAB
     Dosage: 150 MG, QMO (ONCE)
     Route: 065
     Dates: start: 20201209, end: 20201209
  18. COSENTYX [Suspect]
     Active Substance: SECUKINUMAB
     Dosage: 150 MG, QMO (ONCE)
     Route: 065
     Dates: start: 20210106, end: 20210106
  19. COSENTYX [Suspect]
     Active Substance: SECUKINUMAB
     Dosage: 150 MG, QMO (ONCE)
     Route: 065
     Dates: start: 20210203, end: 20210203
  20. COSENTYX [Suspect]
     Active Substance: SECUKINUMAB
     Dosage: 150 MG, QMO (ONCE)
     Route: 065
     Dates: start: 20210303, end: 20210303
  21. COSENTYX [Suspect]
     Active Substance: SECUKINUMAB
     Dosage: 150 MG, QMO (ONCE)
     Route: 065
     Dates: start: 20210331, end: 20210331
  22. COSENTYX [Suspect]
     Active Substance: SECUKINUMAB
     Dosage: 150 MG, QMO (ONCE)
     Route: 065
     Dates: start: 20210428, end: 20210428
  23. PREDNISOLONE [Concomitant]
     Active Substance: PREDNISOLONE
     Indication: Spondyloarthropathy
     Dosage: 2.5 MG, QD
     Route: 048
     Dates: start: 20191212, end: 20200504
  24. PREDNISOLONE [Concomitant]
     Active Substance: PREDNISOLONE
     Dosage: 5 MG, QD
     Route: 048
     Dates: start: 20200505, end: 20200811
  25. PREDNISOLONE [Concomitant]
     Active Substance: PREDNISOLONE
     Dosage: 2.5 MG, QD
     Route: 048
     Dates: start: 20200812
  26. ETORI [Concomitant]
     Indication: Spondyloarthropathy
     Dosage: 90 MG
     Route: 048
     Dates: start: 20200505

REACTIONS (5)
  - Anxiety [Recovered/Resolved]
  - Insomnia [Recovered/Resolved]
  - Rash [Recovered/Resolved]
  - Fungal infection [Recovered/Resolved]
  - Performance status decreased [Recovered/Resolved]

NARRATIVE: CASE EVENT DATE: 20210409
